FAERS Safety Report 8620759-7 (Version None)
Quarter: 2012Q3

REPORT INFORMATION
  Report Type: 
  Country: None (occurrence: None)
  Receive Date: 20120824
  Receipt Date: 20120815
  Transmission Date: 20120928
  Serious: Yes (Other)
  Sender: FDA-Public Use
  Company Number: US-ALLERGAN-1211267US

PATIENT
  Age: 65 Year
  Sex: Male

DRUGS (2)
  1. LUMIGAN [Suspect]
     Dosage: 2 GTT, QHS
     Route: 047
     Dates: start: 20100101
  2. LUMIGAN [Suspect]
     Indication: GLAUCOMA
     Dosage: 2 GTT, QHS
     Route: 047
     Dates: start: 20100101

REACTIONS (3)
  - INTRAOCULAR PRESSURE INCREASED [None]
  - GROWTH OF EYELASHES [None]
  - VISUAL FIELD DEFECT [None]
